FAERS Safety Report 5399155-4 (Version None)
Quarter: 2007Q3

REPORT INFORMATION
  Report Type: 
  Country: None (occurrence: None)
  Receive Date: 20070727
  Receipt Date: 20070720
  Transmission Date: 20080115
  Serious: Yes (Hospitalization)
  Sender: FDA-Public Use
  Company Number: US-ELI_LILLY_AND_COMPANY-US200707005293

PATIENT
  Sex: Female

DRUGS (2)
  1. BYETTA [Suspect]
     Dosage: UNK, UNKNOWN
     Route: 058
  2. ASPIRIN [Concomitant]

REACTIONS (2)
  - CONTUSION [None]
  - CORONARY ARTERY BYPASS [None]
